FAERS Safety Report 15216764 (Version 2)
Quarter: 2018Q3

REPORT INFORMATION
  Report Type: Spontaneous
  Country: BR (occurrence: BR)
  Receive Date: 20180730
  Receipt Date: 20180803
  Transmission Date: 20181010
  Serious: Yes (Other)
  Sender: FDA-Public Use
  Company Number: BR-GEHC-2018CSU002928

PATIENT

DRUGS (8)
  1. ONDANSETRON [Concomitant]
     Active Substance: ONDANSETRON
     Dosage: 8 MG, UNK
  2. REOPRO [Concomitant]
     Active Substance: ABCIXIMAB
     Dosage: 30 MG, UNK
  3. VISIPAQUE [Suspect]
     Active Substance: IODIXANOL
     Indication: ACUTE MYOCARDIAL INFARCTION
     Dosage: 400 ML, SINGLE
     Route: 013
     Dates: start: 20180712, end: 20180712
  4. HEPARIN SODIUM. [Concomitant]
     Active Substance: HEPARIN SODIUM
     Dosage: 10000 IU, UNK
     Route: 042
  5. LIDOCAINE. [Concomitant]
     Active Substance: LIDOCAINE
     Dosage: 1 BOTTLE (UNIT DOSE NOT PROVIDED)
  6. SERUM PHYSIOLOGICAL [Concomitant]
     Active Substance: SODIUM CHLORIDE
     Dosage: 1000 ML, UNK
  7. HEXABRIX [Concomitant]
     Active Substance: IOXAGLATE MEGLUMINE\IOXAGLATE SODIUM
     Dosage: 50 ML, UNK
     Route: 065
  8. TRIDIL                             /00003201/ [Concomitant]
     Dosage: 1 AMPOULE (UNIT DOSE NOT PROVIDED)

REACTIONS (2)
  - Petechiae [Recovered/Resolved]
  - Flushing [Recovered/Resolved]

NARRATIVE: CASE EVENT DATE: 20180712
